FAERS Safety Report 6185435-1 (Version None)
Quarter: 2009Q2

REPORT INFORMATION
  Report Type: 
  Country: None (occurrence: None)
  Receive Date: 20090505
  Receipt Date: 20080512
  Transmission Date: 20091009
  Serious: Yes (Other)
  Sender: FDA-Public Use
  Company Number: 48299

PATIENT
  Age: 49 Year
  Sex: Male

DRUGS (1)
  1. OCTREOTIDE ACETATE [Suspect]
     Indication: NEUROENDOCRINE TUMOUR
     Dates: start: 20080502

REACTIONS (1)
  - PYREXIA [None]
